FAERS Safety Report 5874519-0 (Version None)
Quarter: 2008Q3

REPORT INFORMATION
  Report Type: 
  Country: None (occurrence: None)
  Receive Date: 20080909
  Receipt Date: 20080829
  Transmission Date: 20090109
  Serious: Yes (Other)
  Sender: FDA-Public Use
  Company Number: PHHY2008DE19678

PATIENT
  Sex: Female
  Weight: 52 kg

DRUGS (2)
  1. ZOMETA [Suspect]
     Indication: BREAST CANCER
     Dosage: 4 MG ONCE A MONTH
     Route: 042
     Dates: start: 20010629, end: 20050223
  2. TAMOXIFEN CITRATE [Concomitant]
     Indication: BREAST CANCER
     Dosage: UNK
     Dates: start: 19981201

REACTIONS (2)
  - OSTEOMYELITIS [None]
  - OSTEOPENIA [None]
